FAERS Safety Report 15050334 (Version 1)
Quarter: 2018Q2

REPORT INFORMATION
  Report Type: Report from Study
  Country: CA (occurrence: CA)
  Receive Date: 20180622
  Receipt Date: 20180622
  Transmission Date: 20180711
  Serious: Yes (Other)
  Sender: FDA-Public Use
  Company Number: CA-SA-2015SA137102

PATIENT
  Age: 30 Year
  Sex: Female

DRUGS (28)
  1. ALEMTUZUMAB [Suspect]
     Active Substance: ALEMTUZUMAB
     Dosage: 12 MG,QD
     Route: 041
     Dates: start: 20150722, end: 20150722
  2. MARVELON [Concomitant]
     Active Substance: DESOGESTREL\ETHINYL ESTRADIOL
     Indication: PROPHYLAXIS
     Dosage: 1 DF,QD
     Route: 048
     Dates: start: 2001, end: 20150823
  3. ACICLOVIR [Concomitant]
     Active Substance: ACYCLOVIR
     Indication: PROPHYLAXIS
     Dosage: 200 MG,QD
     Route: 048
     Dates: start: 20150720, end: 20150730
  4. GRAVOL [Concomitant]
     Active Substance: DIMENHYDRINATE
     Indication: DRUG THERAPY
     Dosage: 50 MG,QD
     Route: 048
     Dates: start: 20150722, end: 20150728
  5. OXEZE [Concomitant]
     Active Substance: FORMOTEROL FUMARATE
     Indication: PROPHYLAXIS
     Dosage: 1 DF,QD
     Route: 055
     Dates: start: 20130109, end: 20160128
  6. ALEMTUZUMAB [Suspect]
     Active Substance: ALEMTUZUMAB
     Dosage: 12 MG,QD
     Route: 041
     Dates: start: 20150728, end: 20150728
  7. ALEMTUZUMAB [Suspect]
     Active Substance: ALEMTUZUMAB
     Dosage: UNK
  8. ZANTAC [Concomitant]
     Active Substance: RANITIDINE HYDROCHLORIDE
     Dosage: 150 MG,QD
     Route: 048
     Dates: start: 20150720, end: 20150720
  9. REACTINE [CETIRIZINE HYDROCHLORIDE] [Concomitant]
     Active Substance: CETIRIZINE HYDROCHLORIDE
     Indication: DRUG THERAPY
     Dosage: 1 DF,QD
     Route: 048
     Dates: start: 2010
  10. HYDROXYZINE [Concomitant]
     Active Substance: HYDROXYZINE HYDROCHLORIDE
     Indication: DRUG THERAPY
     Dosage: 20 MG,QD
     Route: 048
     Dates: start: 20150725, end: 20150727
  11. AMANTADINE. [Concomitant]
     Active Substance: AMANTADINE HYDROCHLORIDE
     Indication: PROPHYLAXIS
     Dosage: 400 MG,QD
     Route: 048
     Dates: start: 20150516, end: 20160115
  12. XARELTO [Concomitant]
     Active Substance: RIVAROXABAN
     Indication: PROPHYLAXIS
     Dosage: 30 MG,QD
     Route: 048
     Dates: start: 20150824, end: 20150914
  13. NORTRIPTYLINE [Concomitant]
     Active Substance: NORTRIPTYLINE
     Indication: DRUG THERAPY
     Dosage: 10 MG,QD
     Route: 048
     Dates: start: 20141009, end: 20160115
  14. BENADRYL [Concomitant]
     Active Substance: DIPHENHYDRAMINE HYDROCHLORIDE
     Indication: PROPHYLAXIS
     Dosage: 50 MG,QD
     Route: 042
     Dates: start: 20150720, end: 20150730
  15. LEVAQUIN [Concomitant]
     Active Substance: LEVOFLOXACIN
     Indication: PROPHYLAXIS
     Dosage: 750 MG,QD
     Route: 048
     Dates: start: 20150924, end: 20150930
  16. ZANTAC [Concomitant]
     Active Substance: RANITIDINE HYDROCHLORIDE
     Indication: DRUG THERAPY
     Dosage: 150 MG,QD
     Route: 048
     Dates: start: 20150720, end: 20150730
  17. HYDROXYZINE [Concomitant]
     Active Substance: HYDROXYZINE HYDROCHLORIDE
     Dosage: 10 MG,QD
     Route: 048
     Dates: start: 20150722, end: 20150722
  18. ALEMTUZUMAB [Suspect]
     Active Substance: ALEMTUZUMAB
     Dosage: 12 MG,QD
     Route: 041
     Dates: start: 20150730, end: 20150730
  19. XARELTO [Concomitant]
     Active Substance: RIVAROXABAN
     Indication: DRUG THERAPY
     Dosage: 20 MG,QD
     Dates: start: 20150915, end: 20151115
  20. SOLU-MEDROL [Concomitant]
     Active Substance: METHYLPREDNISOLONE SODIUM SUCCINATE
     Dosage: UNK UNK,UNK
     Route: 065
  21. CEFUROXIME AXETIL. [Concomitant]
     Active Substance: CEFUROXIME AXETIL
     Indication: PROPHYLAXIS
     Dosage: 1000 MG,QD
     Route: 048
     Dates: start: 20150910, end: 20150916
  22. SYMBICORT [Concomitant]
     Active Substance: BUDESONIDE\FORMOTEROL FUMARATE DIHYDRATE
     Indication: PROPHYLAXIS
     Dosage: 1 DF,QD
     Route: 055
     Dates: start: 20140129
  23. ALEMTUZUMAB [Suspect]
     Active Substance: ALEMTUZUMAB
     Indication: MULTIPLE SCLEROSIS RELAPSE
     Dosage: 12 MG,QD
     Route: 041
     Dates: start: 20150720, end: 20150720
  24. ALEMTUZUMAB [Suspect]
     Active Substance: ALEMTUZUMAB
     Dosage: 12 MG,QD
     Route: 041
     Dates: start: 20150724, end: 20150724
  25. ERGOCALCIFEROL. [Concomitant]
     Active Substance: ERGOCALCIFEROL
     Indication: PROPHYLAXIS
     Dosage: 2000 IU,QD
     Route: 048
     Dates: start: 2010
  26. TOPAMAX [Concomitant]
     Active Substance: TOPIRAMATE
     Indication: DRUG THERAPY
     Dosage: 25 MG,QD
     Route: 048
     Dates: start: 20140925, end: 20160115
  27. PREDNISONE. [Concomitant]
     Active Substance: PREDNISONE
     Indication: DRUG THERAPY
     Dosage: 60 MG,QD
     Route: 048
     Dates: start: 20150805, end: 20150810
  28. NYSTATIN. [Concomitant]
     Active Substance: NYSTATIN
     Indication: DRUG THERAPY
     Dosage: 2000 IU,QD
     Route: 048
     Dates: start: 20150910, end: 20150916

REACTIONS (19)
  - Back pain [Recovered/Resolved]
  - Electrocardiogram QT prolonged [Recovered/Resolved]
  - Rash [Recovered/Resolved]
  - Pneumonia [Recovered/Resolved]
  - Lymphopenia [Not Recovered/Not Resolved]
  - Feeling hot [Recovered/Resolved]
  - Bronchitis [Recovered/Resolved]
  - Insomnia [Recovered/Resolved]
  - Nausea [Recovered/Resolved]
  - Flushing [Recovered/Resolved]
  - Rash [Recovered/Resolved]
  - Thrombophlebitis [Recovered/Resolved]
  - Sinus tachycardia [Recovered/Resolved]
  - Erythema [Recovered/Resolved]
  - Erythema [Recovered/Resolved]
  - Dyspepsia [Recovered/Resolved]
  - Saliva altered [Recovered/Resolved]
  - Myalgia [Recovered/Resolved]
  - Dyspnoea exertional [Recovered/Resolved]

NARRATIVE: CASE EVENT DATE: 20150720
